FAERS Safety Report 14616000 (Version 1)
Quarter: 2018Q1

REPORT INFORMATION
  Report Type: Report from Study
  Country: AU (occurrence: AU)
  Receive Date: 20180309
  Receipt Date: 20180309
  Transmission Date: 20180509
  Serious: Yes (Other)
  Sender: FDA-Public Use
  Company Number: AU-CASPER PHARMA, LLC-CAS201802-000088

PATIENT

DRUGS (6)
  1. AZATHIOPRINE. [Suspect]
     Active Substance: AZATHIOPRINE
     Route: 048
  2. FOLIC ACID. [Concomitant]
     Active Substance: FOLIC ACID
  3. AZATHIOPRINE. [Suspect]
     Active Substance: AZATHIOPRINE
  4. METHOTREXATE. [Suspect]
     Active Substance: METHOTREXATE
  5. AZATHIOPRINE. [Suspect]
     Active Substance: AZATHIOPRINE
  6. CYCLOSPORIN [Suspect]
     Active Substance: CYCLOSPORINE

REACTIONS (1)
  - Drug reaction with eosinophilia and systemic symptoms [Unknown]
